FAERS Safety Report 8237801-8 (Version None)
Quarter: 2012Q1

REPORT INFORMATION
  Report Type: 
  Country: None (occurrence: None)
  Receive Date: 20120326
  Receipt Date: 20120315
  Transmission Date: 20120608
  Serious: Yes (Other)
  Sender: FDA-Public Use
  Company Number: ACO_29305_2012

PATIENT
  Age: 66 Year
  Sex: Female

DRUGS (3)
  1. NORVASC [Concomitant]
  2. AMPYRA [Suspect]
     Indication: PRODUCT USED FOR UNKNOWN INDICATION
     Dosage: 10 MG, BID; 10 MG, BID
     Dates: start: 20120201
  3. AMPYRA [Suspect]
     Indication: PRODUCT USED FOR UNKNOWN INDICATION
     Dosage: 10 MG, BID; 10 MG, BID
     Dates: start: 20111201, end: 20120201

REACTIONS (3)
  - PAIN IN EXTREMITY [None]
  - THROMBOSIS [None]
  - ARTHRALGIA [None]
